FAERS Safety Report 8248789-8 (Version None)
Quarter: 2012Q1

REPORT INFORMATION
  Report Type: 
  Country: None (occurrence: None)
  Receive Date: 20120331
  Receipt Date: 20120321
  Transmission Date: 20120608
  Serious: Yes (Hospitalization, Other)
  Sender: FDA-Public Use
  Company Number: US-ALLERGAN-1204067US

PATIENT
  Age: 55 Year
  Sex: Female

DRUGS (1)
  1. BOTOX COSMETIC [Suspect]
     Indication: SKIN WRINKLING
     Dosage: 30 UNITS, SINGLE
     Route: 030
     Dates: start: 20101117, end: 20101117

REACTIONS (16)
  - DYSPNOEA [None]
  - TREMOR [None]
  - COUGH [None]
  - OROPHARYNGEAL PAIN [None]
  - APHONIA [None]
  - SINUSITIS [None]
  - MUSCLE SPASMS [None]
  - NECK PAIN [None]
  - VISION BLURRED [None]
  - URINARY INCONTINENCE [None]
  - SKIN WARM [None]
  - COMA [None]
  - BEDRIDDEN [None]
  - EAR DISCOMFORT [None]
  - VISUAL IMPAIRMENT [None]
  - ASTHENIA [None]
